FAERS Safety Report 10156914 (Version 1)
Quarter: 2014Q2

REPORT INFORMATION
  Report Type: Spontaneous
  Country: CH (occurrence: CH)
  Receive Date: 20140507
  Receipt Date: 20140507
  Transmission Date: 20141212
  Serious: Yes (Death)
  Sender: FDA-Public Use
  Company Number: CH-BAYER-2014-063129

PATIENT
  Age: 86 Year
  Sex: Male

DRUGS (6)
  1. ASPIRIN CARDIO [Suspect]
     Dosage: 100 MG, QD
     Route: 048
     Dates: end: 20140310
  2. CONCOR [Concomitant]
     Dosage: 1.25 MG, BID
     Route: 048
     Dates: end: 20140310
  3. TOREM [Concomitant]
     Dosage: 10 MG, QD
     Dates: end: 20140310
  4. PLENDIL [Concomitant]
     Dosage: 10 MG, QD
     Route: 048
     Dates: end: 20140310
  5. LITALIR [Concomitant]
     Dosage: 500 MG, QD
     Route: 048
     Dates: end: 20140310
  6. VENTOLIN [Concomitant]
     Dosage: 1 DF, QD
     Route: 055
     Dates: end: 20140310

REACTIONS (1)
  - Cerebral haemorrhage [Fatal]
